FAERS Safety Report 5705202-X (Version None)
Quarter: 2008Q2

REPORT INFORMATION
  Report Type: 
  Country: None (occurrence: None)
  Receive Date: 20080410
  Receipt Date: 20080331
  Transmission Date: 20081010
  Serious: Yes (Hospitalization)
  Sender: FDA-Public Use
  Company Number: CHNY2008NZ01437

PATIENT
  Sex: Female

DRUGS (1)
  1. OTRIVIN [Suspect]
     Indication: NASAL CONGESTION
     Dosage: SINGLE DOSE, NASAL
     Route: 045
     Dates: start: 20080328, end: 20080328

REACTIONS (3)
  - HEART RATE INCREASED [None]
  - NASAL CONGESTION [None]
  - PALPITATIONS [None]
